FAERS Safety Report 8346260-6 (Version None)
Quarter: 2012Q2

REPORT INFORMATION
  Report Type: 
  Country: None (occurrence: None)
  Receive Date: 20120507
  Receipt Date: 20120502
  Transmission Date: 20120825
  Serious: Yes (Hospitalization)
  Sender: FDA-Public Use
  Company Number: KV201200071

PATIENT
  Sex: Female

DRUGS (1)
  1. MAKENA [Suspect]
     Indication: PREMATURE DELIVERY
     Dosage: 250 MG, ONCE WEEKLY, INTRAMUSCULAR
     Route: 030
     Dates: start: 20120410

REACTIONS (10)
  - TREATMENT NONCOMPLIANCE [None]
  - VOMITING [None]
  - SYNCOPE [None]
  - PREMATURE LABOUR [None]
  - MATERNAL EXPOSURE DURING PREGNANCY [None]
  - DRUG DOSE OMISSION [None]
  - DEHYDRATION [None]
  - NAUSEA [None]
  - OFF LABEL USE [None]
  - HYPOPHAGIA [None]
